FAERS Safety Report 5852904-0 (Version None)
Quarter: 2008Q3

REPORT INFORMATION
  Report Type: 
  Country: None (occurrence: None)
  Receive Date: 20080821
  Receipt Date: 20080408
  Transmission Date: 20090109
  Serious: Yes (Other)
  Sender: FDA-Public Use
  Company Number: US-JNJFOC-20080402951

PATIENT
  Age: 67 Year
  Sex: Female
  Weight: 69.85 kg

DRUGS (2)
  1. PEPCID AC [Suspect]
     Route: 048
  2. PEPCID AC [Suspect]
     Indication: THROAT TIGHTNESS
     Route: 048

REACTIONS (1)
  - THROAT TIGHTNESS [None]
